FAERS Safety Report 20733750 (Version 4)
Quarter: 2022Q3

REPORT INFORMATION
  Report Type: Other
  Country: CA (occurrence: None)
  Receive Date: 20220421
  Receipt Date: 20220705
  Transmission Date: 20221027
  Serious: Yes (Hospitalization)
  Sender: FDA-Public Use
  Company Number: CA-ROCHE-3075261

PATIENT
  Sex: Male

DRUGS (2)
  1. OCREVUS [Suspect]
     Active Substance: OCRELIZUMAB
     Indication: Primary progressive multiple sclerosis
     Dosage: INITIALLY 300 MG AT DAY 0 AND 14, THEN 600 MG EVERY 6 MONTH
     Route: 042
     Dates: start: 20190411
  2. MORPHINE [Concomitant]
     Active Substance: MORPHINE

REACTIONS (4)
  - Localised infection [Recovering/Resolving]
  - Fall [Unknown]
  - Limb injury [Not Recovered/Not Resolved]
  - Asthenia [Unknown]
